FAERS Safety Report 9185004 (Version 1)
Quarter: 2013Q1

REPORT INFORMATION
  Report Type: Spontaneous
  Country: GB (occurrence: GB)
  Receive Date: 20130325
  Receipt Date: 20130325
  Transmission Date: 20140127
  Serious: Yes (Other)
  Sender: FDA-Public Use
  Company Number: GB-JNJFOC-20130308915

PATIENT
  Age: 45 Year
  Sex: Male

DRUGS (1)
  1. CALPOL [Suspect]
     Indication: INTENTIONAL DRUG MISUSE
     Route: 048

REACTIONS (2)
  - Drug dependence [Unknown]
  - Intentional drug misuse [Unknown]
